FAERS Safety Report 8484565-9 (Version None)
Quarter: 2012Q3

REPORT INFORMATION
  Report Type: 
  Country: None (occurrence: None)
  Receive Date: 20120703
  Receipt Date: 20120625
  Transmission Date: 20120928
  Serious: Yes (Other)
  Sender: FDA-Public Use
  Company Number: US-PFIZER INC-2012153439

PATIENT
  Sex: Female

DRUGS (6)
  1. ATIVAN [Suspect]
     Dosage: UNK
  2. PAXIL [Suspect]
     Dosage: UNK
  3. CELEXA [Suspect]
     Dosage: UNK
  4. EFFEXOR [Suspect]
     Dosage: UNK
  5. NEURONTIN [Suspect]
     Dosage: UNK
  6. ZOLOFT [Suspect]
     Dosage: UNK

REACTIONS (1)
  - WITHDRAWAL SYNDROME [None]
